FAERS Safety Report 21224009 (Version 1)
Quarter: 2022Q3

REPORT INFORMATION
  Report Type: Spontaneous
  Country: US (occurrence: US)
  Receive Date: 20220817
  Receipt Date: 20220817
  Transmission Date: 20221026
  Serious: No
  Sender: FDA-Public Use
  Company Number: US-SA-2022MK000006

PATIENT
  Age: 61 Year
  Sex: Female
  Weight: 63.560 kg

DRUGS (7)
  1. AFREZZA [Suspect]
     Active Substance: INSULIN HUMAN
     Indication: Type 1 diabetes mellitus
     Dosage: UP TO 50 UNITS DAILY
     Dates: start: 20211216
  2. AFREZZA [Suspect]
     Active Substance: INSULIN HUMAN
     Dosage: UP TO 50 UNITS DAILY
     Dates: start: 20211216
  3. TRESIBA [Concomitant]
     Active Substance: INSULIN DEGLUDEC
     Indication: Type 1 diabetes mellitus
     Dates: start: 202110
  4. HUMALOG [Concomitant]
     Active Substance: INSULIN LISPRO
     Indication: Type 1 diabetes mellitus
     Dates: start: 202110
  5. Lyumjev Jr pen [Concomitant]
     Indication: Type 1 diabetes mellitus
     Dates: start: 202108
  6. LANTUS [Concomitant]
     Active Substance: INSULIN GLARGINE
     Indication: Type 1 diabetes mellitus
     Dates: start: 202108, end: 202110
  7. ASPIRIN [Concomitant]
     Active Substance: ASPIRIN
     Indication: Product used for unknown indication
     Route: 048

REACTIONS (3)
  - Blood glucose increased [Unknown]
  - Blood glucose decreased [Unknown]
  - Intentional device use issue [Unknown]
